FAERS Safety Report 11359103 (Version 1)
Quarter: 2015Q3

REPORT INFORMATION
  Report Type: Report from Study
  Country: US (occurrence: US)
  Receive Date: 20150807
  Receipt Date: 20150807
  Transmission Date: 20151125
  Serious: Yes (Life-Threatening)
  Sender: FDA-Public Use
  Company Number: US-ACTELION-A-US2015-121948

PATIENT
  Age: 59 Year
  Sex: Female

DRUGS (2)
  1. RIOCIGUAT [Concomitant]
     Active Substance: RIOCIGUAT
  2. MACITENTAN [Suspect]
     Active Substance: MACITENTAN
     Indication: PULMONARY ARTERIAL HYPERTENSION
     Dosage: 10 MG, UNK
     Route: 048
     Dates: start: 20150706

REACTIONS (1)
  - Pharyngeal oedema [Recovered/Resolved]
